FAERS Safety Report 5197919-3 (Version None)
Quarter: 2007Q1

REPORT INFORMATION
  Report Type: 
  Country: None (occurrence: None)
  Receive Date: 20070104
  Receipt Date: 20061227
  Transmission Date: 20070707
  Serious: Yes (Other)
  Sender: FDA-Public Use
  Company Number: PHBS2006BR09963

PATIENT
  Age: 64 Year
  Sex: Female
  Weight: 73 kg

DRUGS (6)
  1. DIOVAN HCT [Suspect]
     Indication: HYPERTENSION
     Dosage: VALS 160 / HCT 12.5 MG/DAY
     Route: 048
     Dates: start: 20060601
  2. SELOZOK [Concomitant]
     Dosage: 1 TABLET/DAY
     Route: 048
     Dates: start: 20010101, end: 20060101
  3. SILIMALON [Concomitant]
     Dosage: 2 TABLETS/DAY
     Route: 048
     Dates: start: 20060201, end: 20060601
  4. DIOVAN [Suspect]
     Indication: HYPERTENSION
     Dosage: 160 MG/DAY
  5. FLORATIL [Concomitant]
  6. ATROVERAN [Concomitant]

REACTIONS (7)
  - ABDOMINAL PAIN [None]
  - COLITIS [None]
  - DIARRHOEA [None]
  - GASTROINTESTINAL INFECTION [None]
  - HYPERSENSITIVITY [None]
  - PALPITATIONS [None]
  - PYREXIA [None]
